FAERS Safety Report 19974039 (Version 1)
Quarter: 2021Q4

REPORT INFORMATION
  Report Type: Report from Study
  Country: VN (occurrence: VN)
  Receive Date: 20211020
  Receipt Date: 20211020
  Transmission Date: 20220303
  Serious: Yes (Hospitalization)
  Sender: FDA-Public Use
  Company Number: VN-NOVARTISPH-NVSC2021VN237050

PATIENT
  Sex: Male

DRUGS (2)
  1. ROSUVASTATIN [Suspect]
     Active Substance: ROSUVASTATIN
     Indication: Percutaneous coronary intervention
     Dosage: 20 MG
     Route: 065
  2. ROSUVASTATIN [Suspect]
     Active Substance: ROSUVASTATIN
     Dosage: 40 MG
     Route: 065

REACTIONS (2)
  - Adverse event [Unknown]
  - Low density lipoprotein decreased [Unknown]
